FAERS Safety Report 9691961 (Version 1)
Quarter: 2013Q4

REPORT INFORMATION
  Report Type: Report from Study
  Country: CA (occurrence: CA)
  Receive Date: 20131118
  Receipt Date: 20131118
  Transmission Date: 20140711
  Serious: Yes (Hospitalization)
  Sender: FDA-Public Use
  Company Number: CA-ROCHE-1302564

PATIENT
  Sex: Male
  Weight: 75.7 kg

DRUGS (7)
  1. ACTEMRA [Suspect]
     Indication: RHEUMATOID ARTHRITIS
     Route: 042
     Dates: start: 20131015, end: 20131015
  2. PREDNISONE [Concomitant]
  3. PANTOLOC [Concomitant]
  4. LYRICA [Concomitant]
  5. LASIX [Concomitant]
  6. FOSAMAX [Concomitant]
  7. COUMADIN [Concomitant]
     Route: 065
     Dates: end: 20121107

REACTIONS (1)
  - Red blood cell count decreased [Unknown]
